FAERS Safety Report 21309456 (Version 1)
Quarter: 2022Q3

REPORT INFORMATION
  Report Type: Spontaneous
  Country: US (occurrence: US)
  Receive Date: 20220908
  Receipt Date: 20220908
  Transmission Date: 20221027
  Serious: No
  Sender: FDA-Public Use
  Company Number: US-BRAINTREE LABORATORIES, INC.-2021BTE00948

PATIENT
  Age: 71 Year
  Sex: Female

DRUGS (5)
  1. SUPREP BOWEL PREP [Suspect]
     Active Substance: MAGNESIUM SULFATE\POTASSIUM SULFATE\SODIUM SULFATE
     Indication: Colonoscopy
     Dosage: 1 X 6 OZ BOTTLE, 1X
     Route: 048
     Dates: start: 20211116
  2. ATORVASTATIN [Concomitant]
     Active Substance: ATORVASTATIN
  3. LISINOPRIL [Concomitant]
     Active Substance: LISINOPRIL
  4. LANTUS [Concomitant]
     Active Substance: INSULIN GLARGINE
  5. TRULICITY [Concomitant]
     Active Substance: DULAGLUTIDE

REACTIONS (1)
  - Vomiting projectile [Recovered/Resolved]

NARRATIVE: CASE EVENT DATE: 20211116
